FAERS Safety Report 7952971-4 (Version None)
Quarter: 2011Q4

REPORT INFORMATION
  Report Type: 
  Country: None (occurrence: None)
  Receive Date: 20111201
  Receipt Date: 20111122
  Transmission Date: 20120403
  Serious: Yes (Other)
  Sender: FDA-Public Use
  Company Number: PHHY2011CA101256

PATIENT
  Sex: Female

DRUGS (1)
  1. SANDOSTATIN [Suspect]
     Indication: ACROMEGALY
     Dosage: 100 UG, ONCE
     Route: 058
     Dates: start: 20111104, end: 20111104

REACTIONS (7)
  - BRONCHITIS [None]
  - CONSTIPATION [None]
  - NAUSEA [None]
  - ABNORMAL SENSATION IN EYE [None]
  - MEMORY IMPAIRMENT [None]
  - WHEEZING [None]
  - VISION BLURRED [None]
